FAERS Safety Report 16107497 (Version 1)
Quarter: 2019Q1

REPORT INFORMATION
  Report Type: Spontaneous
  Country: US (occurrence: US)
  Receive Date: 20190322
  Receipt Date: 20190322
  Transmission Date: 20190418
  Serious: No
  Sender: FDA-Public Use
  Company Number: US-BAYER-2019-050575

PATIENT
  Sex: Female

DRUGS (6)
  1. TYLENOL [Concomitant]
     Active Substance: ACETAMINOPHEN
     Indication: PAIN
  2. CIPRO [Suspect]
     Active Substance: CIPROFLOXACIN HYDROCHLORIDE
  3. LYRICA [Suspect]
     Active Substance: PREGABALIN
     Dosage: 150 MG, TID
     Route: 048
  4. TRAMADOL. [Concomitant]
     Active Substance: TRAMADOL
     Indication: PAIN
  5. ALEVE [Concomitant]
     Active Substance: NAPROXEN SODIUM
  6. GAMMA GLOBULIN [Suspect]
     Active Substance: IMMUNE GLOBULIN NOS

REACTIONS (7)
  - Musculoskeletal stiffness [None]
  - Headache [None]
  - Pyrexia [None]
  - Myalgia [None]
  - Influenza like illness [None]
  - Pain [None]
  - Fibromyalgia [None]
